FAERS Safety Report 9491977 (Version 2)
Quarter: 2013Q4

REPORT INFORMATION
  Report Type: Spontaneous
  Country: GB (occurrence: None)
  Receive Date: 20130827
  Receipt Date: 20131212
  Transmission Date: 20140711
  Serious: Yes (Other)
  Sender: FDA-Public Use
  Company Number: AUR-APL-2013-06854

PATIENT
  Age: 78 Year
  Sex: Female

DRUGS (3)
  1. AMLODIPINE [Suspect]
     Indication: PRODUCT USED FOR UNKNOWN INDICATION
     Dosage: (10MG) UNKNOWN
  2. GLICLAZIDE (GLICLAZIDE) [Concomitant]
  3. METFORMIN (METFORMIN) [Concomitant]

REACTIONS (7)
  - Joint swelling [None]
  - Rash erythematous [None]
  - Burning sensation [None]
  - Skin irritation [None]
  - Skin disorder [None]
  - Fear [None]
  - Nightmare [None]
